FAERS Safety Report 5357062-7 (Version None)
Quarter: 2007Q2

REPORT INFORMATION
  Report Type: 
  Country: None (occurrence: None)
  Receive Date: 20070614
  Receipt Date: 20070329
  Transmission Date: 20071010
  Serious: Yes (Other)
  Sender: FDA-Public Use
  Company Number: US-ASTRAZENECA-2007UW06440

PATIENT
  Age: 47 Year
  Sex: Female

DRUGS (6)
  1. SEROQUEL [Suspect]
     Indication: ANXIETY
     Route: 048
     Dates: start: 20070101
  2. SEROQUEL [Suspect]
     Indication: DEPRESSION
     Route: 048
     Dates: start: 20070101
  3. SEROQUEL [Suspect]
     Indication: SCHIZOPHRENIA
     Route: 048
     Dates: start: 20070101
  4. TAXOL WITH CARBOPLATIN [Concomitant]
  5. ABILIFY [Concomitant]
  6. ENBREL [Concomitant]

REACTIONS (1)
  - BLINDNESS [None]
